FAERS Safety Report 10778664 (Version 1)
Quarter: 2015Q1

REPORT INFORMATION
  Report Type: Spontaneous
  Country: IL (occurrence: IL)
  Receive Date: 20150210
  Receipt Date: 20150210
  Transmission Date: 20150721
  Serious: Yes (Other)
  Sender: FDA-Public Use
  Company Number: IL-AMGEN-ISRSP2015011577

PATIENT
  Age: 35 Year
  Sex: Female

DRUGS (2)
  1. CIPRALEX [Concomitant]
     Active Substance: ESCITALOPRAM OXALATE
     Dosage: UNK
  2. ENBREL [Suspect]
     Active Substance: ETANERCEPT
     Indication: SACROILIITIS
     Dosage: 50 MG, WEEKLY
     Route: 065

REACTIONS (2)
  - Back pain [Unknown]
  - Epilepsy [Unknown]

NARRATIVE: CASE EVENT DATE: 201501
